FAERS Safety Report 25235421 (Version 4)
Quarter: 2025Q4

REPORT INFORMATION
  Report Type: Report from Study
  Country: US (occurrence: US)
  Receive Date: 20250424
  Receipt Date: 20251205
  Transmission Date: 20260118
  Serious: Yes (Other)
  Sender: ABBVIE
  Company Number: US-ABBVIE-6099932

PATIENT
  Age: 79 Year
  Sex: Male
  Weight: 90.718 kg

DRUGS (4)
  1. SKYRIZI [Suspect]
     Active Substance: RISANKIZUMAB-RZAA
     Indication: Rheumatoid arthritis
     Dosage: FORM STRENGTH: 150 MILLIGRAM.
     Route: 058
     Dates: start: 20240626
  2. SKYRIZI [Suspect]
     Active Substance: RISANKIZUMAB-RZAA
     Indication: Psoriasis
  3. METHOTREXATE [Concomitant]
     Active Substance: METHOTREXATE
     Indication: Rheumatoid arthritis
     Dosage: 15 MILLIGRAM
  4. METHOTREXATE [Concomitant]
     Active Substance: METHOTREXATE
     Indication: Rheumatoid arthritis
     Dosage: 15 MILLIGRAM

REACTIONS (12)
  - Squamous cell carcinoma [Not Recovered/Not Resolved]
  - Ulcer [Recovered/Resolved]
  - Condition aggravated [Recovering/Resolving]
  - Pruritus [Recovered/Resolved]
  - Pruritus [Recovered/Resolved]
  - Ulcer [Recovered/Resolved]
  - Rash papular [Recovered/Resolved]
  - Rash papular [Recovered/Resolved]
  - Therapeutic response shortened [Unknown]
  - Hypertension [Recovering/Resolving]
  - Gastrooesophageal reflux disease [Recovering/Resolving]
  - Psoriasis [Recovering/Resolving]

NARRATIVE: CASE EVENT DATE: 20241001
